FAERS Safety Report 6254829-8 (Version None)
Quarter: 2009Q3

REPORT INFORMATION
  Report Type: 
  Country: None (occurrence: None)
  Receive Date: 20090702
  Receipt Date: 20090629
  Transmission Date: 20100115
  Serious: Yes (Death)
  Sender: FDA-Public Use
  Company Number: PHEH2009US06174

PATIENT
  Sex: Male
  Weight: 71.655 kg

DRUGS (9)
  1. EXJADE [Suspect]
     Indication: MYELODYSPLASTIC SYNDROME
     Dosage: 1500 MG, QD
     Route: 048
  2. COREG [Concomitant]
  3. COZAAR [Concomitant]
  4. LUNESTA [Concomitant]
  5. HYTRIN [Concomitant]
  6. MS CONTIN [Concomitant]
  7. BUMEX [Concomitant]
  8. TESSALON [Concomitant]
  9. MORPHINE SULFATE [Concomitant]

REACTIONS (3)
  - HAEMATOCRIT DECREASED [None]
  - HAEMOGLOBIN DECREASED [None]
  - MALIGNANT NEOPLASM PROGRESSION [None]
